FAERS Safety Report 8472241-8 (Version None)
Quarter: 2012Q2

REPORT INFORMATION
  Report Type: 
  Country: None (occurrence: None)
  Receive Date: 20120627
  Receipt Date: 20110616
  Transmission Date: 20120825
  Serious: Yes (Hospitalization)
  Sender: FDA-Public Use
  Company Number: US-MYLANLABS-2011S1010515

PATIENT
  Age: 74 Year
  Sex: Male

DRUGS (9)
  1. METHOTREXATE [Suspect]
     Indication: RHEUMATOID ARTHRITIS
     Route: 048
     Dates: start: 20101001, end: 20110303
  2. PROAIR HFA [Concomitant]
     Dates: start: 20110303
  3. ZOLPIDEM [Concomitant]
     Dates: start: 20110308
  4. NIFEDIPINE [Concomitant]
     Dates: start: 20100306
  5. SPIRIVA [Concomitant]
     Dates: start: 20110308
  6. ALBUTEROL [Concomitant]
     Route: 055
     Dates: start: 20110308
  7. OMEPRAZOLE [Concomitant]
     Dates: start: 20110308
  8. PREDNISONE TAB [Concomitant]
     Dates: start: 20101005
  9. CIPROFLOXACIN [Concomitant]
     Dates: start: 20110303

REACTIONS (3)
  - TOXICITY TO VARIOUS AGENTS [None]
  - PULMONARY EMBOLISM [None]
  - DYSPNOEA [None]
